FAERS Safety Report 4661410-0 (Version None)
Quarter: 2005Q2

REPORT INFORMATION
  Report Type: 
  Country: None (occurrence: None)
  Receive Date: 20050513
  Receipt Date: 20050504
  Transmission Date: 20051028
  Serious: Yes (Other)
  Sender: FDA-Public Use
  Company Number: US-GLAXOSMITHKLINE-A0557287A

PATIENT
  Sex: Male

DRUGS (1)
  1. PAXIL CR [Suspect]
     Dosage: 25MG PER DAY
     Route: 048

REACTIONS (3)
  - AGITATION [None]
  - HOMICIDAL IDEATION [None]
  - SUICIDAL IDEATION [None]
